FAERS Safety Report 8315401-9 (Version None)
Quarter: 2012Q2

REPORT INFORMATION
  Report Type: 
  Country: None (occurrence: None)
  Receive Date: 20120426
  Receipt Date: 20120411
  Transmission Date: 20120825
  Serious: No
  Sender: FDA-Public Use
  Company Number: US-BAYER-2012-035494

PATIENT
  Sex: Female

DRUGS (3)
  1. ANTIINFLAMMATORY/ANTIRHEUMATIC NON-STEROIDS [Concomitant]
  2. MIRENA [Suspect]
     Dosage: UNK
  3. PAIN MEDICATION [Concomitant]

REACTIONS (2)
  - PROCEDURAL PAIN [None]
  - DEVICE DIFFICULT TO USE [None]
